FAERS Safety Report 17591925 (Version 1)
Quarter: 2020Q1

REPORT INFORMATION
  Report Type: Spontaneous
  Country: US (occurrence: US)
  Receive Date: 20200327
  Receipt Date: 20200327
  Transmission Date: 20200409
  Serious: No
  Sender: FDA-Public Use
  Company Number: US-TOLMAR, INC.-20US020323

PATIENT
  Age: 15 Year
  Sex: Female

DRUGS (1)
  1. ELIGARD [Suspect]
     Active Substance: LEUPROLIDE ACETATE
     Indication: GENDER DYSPHORIA
     Dosage: 30 MG, Q 4 MONTH
     Route: 058

REACTIONS (4)
  - Product administration error [None]
  - Wrong technique in product usage process [None]
  - Syringe issue [None]
  - Off label use [Unknown]

NARRATIVE: CASE EVENT DATE: 20200206
